FAERS Safety Report 14438691 (Version 3)
Quarter: 2018Q2

REPORT INFORMATION
  Report Type: Spontaneous
  Country: EG (occurrence: EG)
  Receive Date: 20180125
  Receipt Date: 20180510
  Transmission Date: 20180711
  Serious: Yes (Death, Life-Threatening, Hospitalization, Other)
  Sender: FDA-Public Use
  Company Number: EG-SA-2018SA016737

PATIENT
  Age: 5 Year
  Sex: Male
  Weight: 17 kg

DRUGS (2)
  1. CEREZYME [Suspect]
     Active Substance: IMIGLUCERASE
     Indication: GAUCHER^S DISEASE TYPE I
     Dosage: DOSE:30 UNIT(S)/KILOGRAM BODYWEIGHT
     Route: 041
     Dates: start: 20170115, end: 20170813
  2. CEREZYME [Suspect]
     Active Substance: IMIGLUCERASE
     Indication: GAUCHER^S DISEASE TYPE I
     Dosage: DOSE:30 UNIT(S)/KILOGRAM BODYWEIGHT
     Route: 041
     Dates: start: 20171203

REACTIONS (15)
  - Purpura [Recovered/Resolved with Sequelae]
  - Lymphoma [Fatal]
  - Epistaxis [Recovered/Resolved with Sequelae]
  - Haemoptysis [Recovered/Resolved with Sequelae]
  - Respiratory distress [Fatal]
  - Pallor [Recovered/Resolved with Sequelae]
  - Headache [Recovered/Resolved with Sequelae]
  - Hemiplegia [Recovered/Resolved with Sequelae]
  - Thrombocytopenia [Recovered/Resolved with Sequelae]
  - Haemorrhage intracranial [Recovered/Resolved with Sequelae]
  - Cough [Fatal]
  - Anaemia [Recovered/Resolved with Sequelae]
  - Chest X-ray abnormal [Fatal]
  - Altered state of consciousness [Recovered/Resolved with Sequelae]
  - Facial paralysis [Recovered/Resolved with Sequelae]

NARRATIVE: CASE EVENT DATE: 201711
